FAERS Safety Report 9899852 (Version 2)
Quarter: 2014Q3

REPORT INFORMATION
  Report Type: Spontaneous
  Country: US (occurrence: US)
  Receive Date: 20140214
  Receipt Date: 20140813
  Transmission Date: 20150326
  Serious: Yes (Hospitalization, Other)
  Sender: FDA-Public Use
  Company Number: US-009507513-1402USA007194

PATIENT
  Sex: Female

DRUGS (1)
  1. NUVARING [Suspect]
     Active Substance: ETHINYL ESTRADIOL\ETONOGESTREL
     Indication: CONTRACEPTION
     Dosage: UNK
     Route: 067
     Dates: start: 200707, end: 20070809

REACTIONS (12)
  - Splenectomy [Unknown]
  - Ascites [Unknown]
  - Sedation [Unknown]
  - Skin exfoliation [Unknown]
  - Helicobacter infection [Unknown]
  - Portal vein thrombosis [Unknown]
  - Gastric ulcer [Unknown]
  - Constipation [Unknown]
  - Pneumonia [Unknown]
  - Anxiety [Unknown]
  - Amenorrhoea [Unknown]
  - Gastrointestinal oedema [Unknown]

NARRATIVE: CASE EVENT DATE: 200707
